FAERS Safety Report 24748296 (Version 1)
Quarter: 2024Q4

REPORT INFORMATION
  Report Type: Spontaneous
  Country: US (occurrence: US)
  Receive Date: 20241218
  Receipt Date: 20241218
  Transmission Date: 20250115
  Serious: Yes (Death, Other)
  Sender: AMGEN
  Company Number: US-AMGEN-USASP2024244869

PATIENT
  Age: 71 Year
  Sex: Male

DRUGS (8)
  1. PREDNISONE [Suspect]
     Active Substance: PREDNISONE
     Indication: Splenic marginal zone lymphoma
     Dosage: UNK
     Route: 065
  2. IMBRUVICA [Concomitant]
     Active Substance: IBRUTINIB
  3. RITUXIMAB [Concomitant]
     Active Substance: RITUXIMAB
  4. LENALIDOMIDE [Concomitant]
     Active Substance: LENALIDOMIDE
  5. DEXAMETHASONE [Concomitant]
     Active Substance: DEXAMETHASONE
  6. CYCLOPHOSPHAMIDE [Concomitant]
     Active Substance: CYCLOPHOSPHAMIDE
  7. DOXORUBICIN [Concomitant]
     Active Substance: DOXORUBICIN
  8. VINCRISTINE [Concomitant]
     Active Substance: VINCRISTINE

REACTIONS (2)
  - Acute kidney injury [Fatal]
  - Splenic marginal zone lymphoma recurrent [Unknown]
